FAERS Safety Report 6610811-X (Version None)
Quarter: 2010Q1

REPORT INFORMATION
  Report Type: 
  Country: None (occurrence: None)
  Receive Date: 20100302
  Receipt Date: 20100218
  Transmission Date: 20100710
  Serious: Yes (Hospitalization)
  Sender: FDA-Public Use
  Company Number: DE-PFIZER INC-2010017606

PATIENT
  Age: 63 Year
  Sex: Female
  Weight: 76 kg

DRUGS (5)
  1. EPIRUBICIN HYDROCHLORIDE [Suspect]
     Indication: BREAST CANCER
     Dosage: 187 MG, 1X/DAY
     Route: 042
     Dates: start: 20100205, end: 20100205
  2. FLUOROURACIL [Suspect]
     Indication: BREAST CANCER
     Dosage: 935 MG, 1X/DAY
     Route: 042
     Dates: start: 20100205, end: 20100205
  3. CYCLOPHOSPHAMIDE [Suspect]
     Indication: BREAST CANCER
     Dosage: 935 MG, 1X/DAY
     Route: 042
     Dates: start: 20100205, end: 20100205
  4. DEXAMETHASONE [Concomitant]
     Indication: CHEMOTHERAPY
     Dosage: 12 MG, 1X/DAY
     Route: 042
     Dates: start: 20100205, end: 20100205
  5. UROMITEXAN [Concomitant]
     Dosage: 187 MG, 1X/DAY
     Route: 042
     Dates: start: 20100205, end: 20100205

REACTIONS (1)
  - MYOCARDIAL ISCHAEMIA [None]
